FAERS Safety Report 16483631 (Version 1)
Quarter: 2019Q2

REPORT INFORMATION
  Report Type: Spontaneous
  Country: US (occurrence: US)
  Receive Date: 20190516
  Receipt Date: 20190516
  Transmission Date: 20190711
  Serious: Yes (Other)
  Sender: FDA-Public Use
  Company Number: None

PATIENT
  Age: 52 Year
  Sex: Male

DRUGS (1)
  1. SOFOS/VELPAT [Suspect]
     Active Substance: SOFOSBUVIR\VELPATASVIR
     Indication: HEPATITIS C
     Route: 048

REACTIONS (3)
  - Hepatic cirrhosis [None]
  - Chronic hepatic failure [None]
  - Liver transplant [None]

NARRATIVE: CASE EVENT DATE: 20190515
